FAERS Safety Report 24088920 (Version 1)
Quarter: 2024Q3

REPORT INFORMATION
  Report Type: Spontaneous
  Country: JP (occurrence: JP)
  Receive Date: 20240715
  Receipt Date: 20240715
  Transmission Date: 20241017
  Serious: Yes (Life-Threatening, Hospitalization)
  Sender: STRIDES
  Company Number: JP-STRIDES ARCOLAB LIMITED-2024SP008085

PATIENT
  Age: 72 Year
  Sex: Female

DRUGS (24)
  1. HALOPERIDOL [Interacting]
     Active Substance: HALOPERIDOL
     Indication: Antipsychotic therapy
     Dosage: 1.5 MILLIGRAM, QD
     Route: 065
  2. HALOPERIDOL [Interacting]
     Active Substance: HALOPERIDOL
     Dosage: UNK
     Route: 065
  3. PHENYTOIN [Interacting]
     Active Substance: PHENYTOIN
     Indication: Epilepsy
     Dosage: 150 MILLIGRAM, QD
     Route: 065
  4. MILNACIPRAN HYDROCHLORIDE [Interacting]
     Active Substance: MILNACIPRAN HYDROCHLORIDE
     Indication: Osteoporosis
     Dosage: 75 MILLIGRAM, QD
     Route: 065
  5. CLONAZEPAM [Interacting]
     Active Substance: CLONAZEPAM
     Indication: Epilepsy
     Dosage: 0.5 MILLIGRAM, QD
     Route: 065
  6. CLONAZEPAM [Interacting]
     Active Substance: CLONAZEPAM
     Indication: Antipsychotic therapy
     Dosage: UNK, (REINSTATED)
     Route: 065
  7. CARBAMAZEPINE [Interacting]
     Active Substance: CARBAMAZEPINE
     Indication: Epilepsy
     Dosage: 400 MILLIGRAM, QD
     Route: 065
  8. CARBAMAZEPINE [Interacting]
     Active Substance: CARBAMAZEPINE
     Indication: Antipsychotic therapy
     Dosage: UNK, (REINSTATED)
     Route: 065
  9. BROMAZEPAM [Interacting]
     Active Substance: BROMAZEPAM
     Indication: Epilepsy
     Dosage: 15 MILLIGRAM, QD
     Route: 065
  10. NIFEDIPINE [Interacting]
     Active Substance: NIFEDIPINE
     Indication: Hypertension
     Dosage: 40 MILLIGRAM, QD
     Route: 065
  11. NIFEDIPINE [Interacting]
     Active Substance: NIFEDIPINE
     Dosage: UNK, (RESUMED ON FOURTH DAY)
     Route: 065
  12. VALSARTAN [Interacting]
     Active Substance: VALSARTAN
     Indication: Hypertension
     Dosage: 80 MILLIGRAM, QD
     Route: 065
  13. VALSARTAN [Interacting]
     Active Substance: VALSARTAN
     Dosage: UNK, (RESUMED ON FOURTH DAY)
     Route: 065
  14. BISOPROLOL [Interacting]
     Active Substance: BISOPROLOL\BISOPROLOL FUMARATE
     Indication: Hypertension
     Dosage: 2.5 MILLIGRAM, QD
     Route: 065
  15. BISOPROLOL [Interacting]
     Active Substance: BISOPROLOL\BISOPROLOL FUMARATE
     Dosage: UNK, (RESUMED ON FOURTH DAY)
     Route: 065
  16. LEVOTHYROXINE [Interacting]
     Active Substance: LEVOTHYROXINE\LEVOTHYROXINE SODIUM
     Indication: Hypothyroidism
     Dosage: 50 MICROGRAM, QD
     Route: 065
  17. ASPIRIN [Interacting]
     Active Substance: ASPIRIN
     Indication: Cerebellar infarction
     Dosage: 100 MILLIGRAM, QD
     Route: 065
  18. FAMOTIDINE [Interacting]
     Active Substance: FAMOTIDINE
     Indication: Gastrooesophageal reflux disease
     Dosage: 20 MILLIGRAM, QD
     Route: 065
  19. PRAVASTATIN [Interacting]
     Active Substance: PRAVASTATIN
     Indication: Dyslipidaemia
     Dosage: 10 MILLIGRAM, QD
     Route: 065
  20. MAGNESIUM OXIDE [Interacting]
     Active Substance: MAGNESIUM OXIDE
     Indication: Constipation
     Dosage: 1.5 GRAM, QD
     Route: 065
  21. SENNOSIDES [Interacting]
     Active Substance: SENNOSIDES
     Indication: Constipation
     Dosage: 24 MILLIGRAM, QD
     Route: 065
  22. ALENDRONIC ACID [Interacting]
     Active Substance: ALENDRONIC ACID
     Indication: Osteoporosis
     Dosage: 35 MILLIGRAM, ONCE A WEEK
     Route: 065
  23. PERICIAZINE [Interacting]
     Active Substance: PERICIAZINE
     Indication: Product used for unknown indication
     Dosage: 10 MILLIGRAM
     Route: 065
  24. BIPERIDEN HYDROCHLORIDE [Interacting]
     Active Substance: BIPERIDEN HYDROCHLORIDE
     Indication: Product used for unknown indication
     Dosage: 1 MILLIGRAM
     Route: 065

REACTIONS (2)
  - Drug interaction [Recovered/Resolved]
  - Toxicity to various agents [Recovered/Resolved]
